FAERS Safety Report 10049416 (Version 1)
Quarter: 2014Q2

REPORT INFORMATION
  Report Type: Spontaneous
  Country: FR (occurrence: FR)
  Receive Date: 20140401
  Receipt Date: 20140401
  Transmission Date: 20141212
  Serious: Yes (Hospitalization)
  Sender: FDA-Public Use
  Company Number: FR-JNJFOC-20140316074

PATIENT
  Age: 71 Year
  Sex: Male

DRUGS (5)
  1. SIMPONI [Suspect]
     Indication: PSORIATIC ARTHROPATHY
     Route: 058
     Dates: start: 201212
  2. METHOTREXATE [Suspect]
     Indication: PSORIATIC ARTHROPATHY
     Route: 048
  3. METHOTREXATE [Suspect]
     Indication: PSORIATIC ARTHROPATHY
     Route: 048
     Dates: start: 200410
  4. REMICADE [Concomitant]
     Indication: PSORIATIC ARTHROPATHY
     Route: 042
     Dates: start: 200902
  5. REMICADE [Concomitant]
     Indication: PSORIATIC ARTHROPATHY
     Route: 042
     Dates: end: 201212

REACTIONS (3)
  - Pancytopenia [Recovering/Resolving]
  - Encephalitis [Recovering/Resolving]
  - Epstein-Barr virus infection [Recovering/Resolving]
